FAERS Safety Report 7800720-2 (Version None)
Quarter: 2011Q4

REPORT INFORMATION
  Report Type: 
  Country: None (occurrence: None)
  Receive Date: 20111006
  Receipt Date: 20111004
  Transmission Date: 20120403
  Serious: Yes (Other)
  Sender: FDA-Public Use
  Company Number: US-ABBOTT-11P-163-0850977-00

PATIENT
  Sex: Male
  Weight: 86.26 kg

DRUGS (2)
  1. HUMIRA [Suspect]
  2. HUMIRA [Suspect]
     Indication: PSORIASIS
     Dates: start: 20101204, end: 20110824

REACTIONS (6)
  - PAIN [None]
  - ARTHROPATHY [None]
  - INCORRECT DOSE ADMINISTERED [None]
  - ABASIA [None]
  - RASH [None]
  - PSORIASIS [None]
